FAERS Safety Report 24906171 (Version 2)
Quarter: 2025Q1

REPORT INFORMATION
  Report Type: Spontaneous
  Country: US (occurrence: US)
  Receive Date: 20250130
  Receipt Date: 20250218
  Transmission Date: 20250409
  Serious: No
  Sender: MERCK SHARP & DOHME LLC
  Company Number: US-009507513-2501USA010402

PATIENT
  Age: 86 Year
  Sex: Female

DRUGS (2)
  1. JANUVIA [Suspect]
     Active Substance: SITAGLIPTIN PHOSPHATE
     Dosage: DOSE DESCRIPTION : 1/DAY?DAILY DOSE : 100 MILLIGRAM?CONCENTRATION: 100 MILLIGRAM
     Route: 048
     Dates: end: 2025
  2. JANUVIA [Suspect]
     Active Substance: SITAGLIPTIN PHOSPHATE
     Dosage: DOSE DESCRIPTION : 1/DAY?DAILY DOSE : 100 MILLIGRAM?CONCENTRATION: 100 MILLIGRAM
     Route: 048
     Dates: start: 2025

REACTIONS (4)
  - Weight increased [Recovered/Resolved]
  - Product use issue [Unknown]
  - Product dose omission issue [Unknown]
  - No adverse event [Unknown]

NARRATIVE: CASE EVENT DATE: 20250126
